FAERS Safety Report 7780633-5 (Version None)
Quarter: 2011Q3

REPORT INFORMATION
  Report Type: 
  Country: None (occurrence: None)
  Receive Date: 20110927
  Receipt Date: 20110114
  Transmission Date: 20111222
  Serious: No
  Sender: FDA-Public Use
  Company Number: US-BRISTOL-MYERS SQUIBB COMPANY-15454259

PATIENT
  Age: 65 Year
  Sex: Male

DRUGS (4)
  1. HYDROCHLOROTHIAZIDE [Suspect]
     Indication: BLOOD PRESSURE
  2. DIOVAN HCT [Suspect]
     Indication: BLOOD PRESSURE
  3. AVAPRO [Suspect]
     Indication: BLOOD PRESSURE
  4. AVALIDE [Suspect]
     Indication: BLOOD PRESSURE

REACTIONS (1)
  - DRUG INEFFECTIVE [None]
